FAERS Safety Report 5380032-X (Version None)
Quarter: 2007Q3

REPORT INFORMATION
  Report Type: 
  Country: None (occurrence: None)
  Receive Date: 20070703
  Receipt Date: 20070625
  Transmission Date: 20080115
  Serious: Yes (Hospitalization)
  Sender: FDA-Public Use
  Company Number: 2007BI013491

PATIENT
  Age: 44 Year
  Sex: Female
  Weight: 68 kg

DRUGS (1)
  1. AVONEX [Suspect]
     Indication: MULTIPLE SCLEROSIS
     Dosage: 30 UG;QW;IM
     Route: 030
     Dates: start: 20041001, end: 20070201

REACTIONS (6)
  - CONDITION AGGRAVATED [None]
  - DEPRESSION [None]
  - FACIAL BONES FRACTURE [None]
  - FALL [None]
  - GAIT DISTURBANCE [None]
  - HEAD INJURY [None]
